FAERS Safety Report 14918866 (Version 2)
Quarter: 2018Q2

REPORT INFORMATION
  Report Type: Spontaneous
  Country: CA (occurrence: CA)
  Receive Date: 20180521
  Receipt Date: 20180525
  Transmission Date: 20180711
  Serious: Yes (Other)
  Sender: FDA-Public Use
  Company Number: CA-CELLTRION INC.-2017CA003168

PATIENT

DRUGS (9)
  1. INFLECTRA [Suspect]
     Active Substance: INFLIXIMAB-DYYB
     Dosage: 970 MG, CYCLIC (EVERY 0, 2, 6 WEEKS, THEN EVERY 8 WEEKS FOR 12 MONTHS)
     Route: 042
  2. INFLECTRA [Suspect]
     Active Substance: INFLIXIMAB-DYYB
     Dosage: 970 MG, CYCLIC (EVERY 8 WEEKS)
     Route: 042
     Dates: start: 20180314
  3. INFLECTRA [Suspect]
     Active Substance: INFLIXIMAB-DYYB
     Dosage: 970 MG, CYCLIC (EVERY 0, 2,6 WEEKS, THEN EVERY 8 6 WEEKS, THEN EVERY 8 WEEKS FOR 12 MONTHS)
     Dates: start: 20180117
  4. VITAMIN D                          /00107901/ [Concomitant]
     Active Substance: ERGOCALCIFEROL
  5. VITAMIN C [Concomitant]
     Active Substance: ASCORBIC ACID
  6. INFLECTRA [Suspect]
     Active Substance: INFLIXIMAB-DYYB
     Indication: PSORIASIS
     Dosage: 970 MG, CYCLIC (EVERY 0, 2,6 WEEKS, THEN EVERY 8 WEEKS FOR 12 MONTHS)
     Route: 042
     Dates: start: 20161111
  7. DOVOBET [Concomitant]
     Active Substance: BETAMETHASONE\CALCIPOTRIENE
     Dosage: UNK
     Dates: start: 2013
  8. INFLECTRA [Suspect]
     Active Substance: INFLIXIMAB-DYYB
     Dosage: 970 MG, CYCLIC (EVERY 8 WEEKS)
     Route: 042
     Dates: start: 20180314
  9. INFLECTRA [Suspect]
     Active Substance: INFLIXIMAB-DYYB
     Dosage: 970 MG, CYCLIC (EVERY 8 WEEKS)
     Route: 042
     Dates: start: 20180516

REACTIONS (4)
  - Fall [Unknown]
  - Blood pressure fluctuation [Unknown]
  - Hypertension [Unknown]
  - Arthritis [Unknown]

NARRATIVE: CASE EVENT DATE: 20170217
